FAERS Safety Report 8091888-4 (Version None)
Quarter: 2012Q1

REPORT INFORMATION
  Report Type: 
  Country: None (occurrence: None)
  Receive Date: 20120129
  Receipt Date: 20111129
  Transmission Date: 20120608
  Serious: No
  Sender: FDA-Public Use
  Company Number: US-ABBOTT-11P-163-0881208-00

PATIENT
  Sex: Male
  Weight: 120.31 kg

DRUGS (6)
  1. AMBIEN [Concomitant]
     Indication: INSOMNIA
  2. UNKNOWN CHOLESTEROL MEDICATIONS [Concomitant]
     Indication: PRODUCT USED FOR UNKNOWN INDICATION
  3. UNKNOWN BLOOD PRESSURE MEDICATIONS [Concomitant]
     Indication: PRODUCT USED FOR UNKNOWN INDICATION
  4. HUMIRA [Suspect]
     Route: 058
     Dates: start: 20110101
  5. HUMIRA [Suspect]
     Indication: PSORIASIS
     Route: 058
     Dates: end: 20110101
  6. UNKNOWN PAIN MEDICATIONS [Concomitant]
     Indication: PRODUCT USED FOR UNKNOWN INDICATION

REACTIONS (7)
  - MUSCULOSKELETAL CHEST PAIN [None]
  - DRY SKIN [None]
  - COUGH [None]
  - ARTHRALGIA [None]
  - INGUINAL HERNIA [None]
  - ABDOMINAL PAIN UPPER [None]
  - INJECTION SITE PAIN [None]
